FAERS Safety Report 14923842 (Version 1)
Quarter: 2018Q2

REPORT INFORMATION
  Report Type: Spontaneous
  Country: DE (occurrence: DE)
  Receive Date: 20180522
  Receipt Date: 20180522
  Transmission Date: 20180711
  Serious: Yes (Hospitalization)
  Sender: FDA-Public Use
  Company Number: DE-PFIZER INC-2018201503

PATIENT
  Age: 87 Year
  Sex: Female

DRUGS (4)
  1. DILTIAZEM HCL [Suspect]
     Active Substance: DILTIAZEM HYDROCHLORIDE
     Dosage: 90 MG, 2X/DAY (1-0-1-0)
  2. HYDROCHLOROTHIAZIDE AND LISINOPRIL [Suspect]
     Active Substance: HYDROCHLOROTHIAZIDE\LISINOPRIL
     Dosage: 0.5 DF, 2X/DAY  (0.5-0-0.5-0)
  3. TORASEMID [Suspect]
     Active Substance: TORSEMIDE
     Dosage: 0.5 DF, 1X/DAY  (0.5-0-0-0)
  4. APIXABAN [Concomitant]
     Active Substance: APIXABAN
     Dosage: 2.5 UNK, 2X/DAY (1-0-1-0)

REACTIONS (2)
  - Cough [Unknown]
  - Dizziness [Unknown]
